FAERS Safety Report 4912262-2 (Version None)
Quarter: 2006Q1

REPORT INFORMATION
  Report Type: 
  Country: None (occurrence: None)
  Receive Date: 20060215
  Receipt Date: 20051130
  Transmission Date: 20060701
  Serious: No
  Sender: FDA-Public Use
  Company Number: US-GLAXOSMITHKLINE-A0584106A

PATIENT
  Age: 56 Year
  Sex: Female

DRUGS (4)
  1. VALTREX [Suspect]
     Dosage: 2G TWICE PER DAY
     Route: 048
     Dates: start: 20051125
  2. CLONAZEPAM [Concomitant]
  3. L-LYSINE [Concomitant]
  4. TRIAMTERENE [Concomitant]

REACTIONS (5)
  - DRUG INEFFECTIVE [None]
  - GENITAL BURNING SENSATION [None]
  - OVERDOSE [None]
  - SKIN LESION [None]
  - URTICARIA [None]
